FAERS Safety Report 10010209 (Version 1)
Quarter: 2014Q1

REPORT INFORMATION
  Report Type: Spontaneous
  Country: SE (occurrence: SE)
  Receive Date: 20140313
  Receipt Date: 20140313
  Transmission Date: 20141002
  Serious: Yes (Other)
  Sender: FDA-Public Use
  Company Number: SE-TEVA-466146ISR

PATIENT
  Age: 35 Year
  Sex: Female

DRUGS (6)
  1. MYFENAX [Suspect]
     Indication: AUTOIMMUNE DISORDER
     Dosage: 2000 MILLIGRAM DAILY;
     Route: 048
     Dates: start: 201309
  2. LEVAXIN [Concomitant]
  3. INSULINE [Concomitant]
  4. ENALAPRIL [Concomitant]
  5. PREDNISOLONE [Concomitant]
  6. ALVEDONE [Concomitant]

REACTIONS (2)
  - Vision blurred [Not Recovered/Not Resolved]
  - Visual acuity reduced [Not Recovered/Not Resolved]
